FAERS Safety Report 22325477 (Version 6)
Quarter: 2024Q2

REPORT INFORMATION
  Report Type: Spontaneous
  Country: US (occurrence: US)
  Receive Date: 20230516
  Receipt Date: 20240416
  Transmission Date: 20240716
  Serious: No
  Sender: FDA-Public Use
  Company Number: US-PFIZER INC-PV202300085109

PATIENT
  Age: 61 Year
  Sex: Female

DRUGS (1)
  1. INLYTA [Suspect]
     Active Substance: AXITINIB
     Dosage: 2.5 MG, 2X/DAY (HALF A TAB BID)

REACTIONS (5)
  - Wrong technique in product usage process [Unknown]
  - Intentional product misuse [Unknown]
  - Dyspnoea [Unknown]
  - Pain in extremity [Unknown]
  - Abdominal pain upper [Recovering/Resolving]
